FAERS Safety Report 16874869 (Version 1)
Quarter: 2019Q4

REPORT INFORMATION
  Report Type: Spontaneous
  Country: JP (occurrence: JP)
  Receive Date: 20191001
  Receipt Date: 20191001
  Transmission Date: 20200122
  Serious: Yes (Death, Other)
  Sender: FDA-Public Use
  Company Number: JP-BAUSCH-BL-2019-054645

PATIENT
  Age: 74 Year
  Sex: Male

DRUGS (11)
  1. CEFOPERAZONE, SULBACTAM [Concomitant]
     Active Substance: CEFOPERAZONE SODIUM\SULBACTAM
     Indication: HAEMOPHAGOCYTIC LYMPHOHISTIOCYTOSIS
  2. PREDNISOLONE. [Suspect]
     Active Substance: PREDNISOLONE
     Indication: HAEMOLYSIS
     Dosage: 80 MG/DAY (1 MG/KG/DAY)
     Route: 065
     Dates: start: 201708
  3. PREDNISOLONE. [Suspect]
     Active Substance: PREDNISOLONE
     Indication: HAEMOPHAGOCYTIC LYMPHOHISTIOCYTOSIS
     Dosage: GRADUALLY REDUCED AND WAS ADMINISTERED OVER 1 MONTH
     Route: 065
     Dates: start: 2017
  4. CEFOPERAZONE, SULBACTAM [Concomitant]
     Active Substance: CEFOPERAZONE SODIUM\SULBACTAM
     Indication: HAEMOLYSIS
     Dates: start: 201708
  5. PREDNISOLONE. [Suspect]
     Active Substance: PREDNISOLONE
     Indication: CHOLECYSTITIS ACUTE
     Dosage: GRADUALLY REDUCED AND WAS ADMINISTERED OVER 1 MONTH
     Route: 065
     Dates: start: 2017
  6. METHYLPREDNISOLONE. [Suspect]
     Active Substance: METHYLPREDNISOLONE
     Indication: BRONCHOPULMONARY ASPERGILLOSIS
     Dosage: PULSE THERAPY
     Route: 065
     Dates: start: 2017, end: 2017
  7. PREDNISOLONE. [Suspect]
     Active Substance: PREDNISOLONE
     Dosage: GRADUALLY REDUCED AND WAS ADMINISTERED OVER 1 MONTH
     Route: 065
     Dates: start: 2017, end: 2017
  8. METHYLPREDNISOLONE. [Suspect]
     Active Substance: METHYLPREDNISOLONE
     Dosage: PULSE THERAPY
     Route: 065
     Dates: start: 2017, end: 2017
  9. LIPOSOMAL AMPHOTERICIN B [Concomitant]
     Active Substance: AMPHOTERICIN B
     Indication: BRONCHOPULMONARY ASPERGILLOSIS
     Dates: start: 2017
  10. CEFOPERAZONE, SULBACTAM [Concomitant]
     Active Substance: CEFOPERAZONE SODIUM\SULBACTAM
     Indication: CHOLECYSTITIS ACUTE
  11. VORICONAZOLE. [Concomitant]
     Active Substance: VORICONAZOLE
     Indication: BRONCHOPULMONARY ASPERGILLOSIS
     Dates: start: 2017, end: 2017

REACTIONS (4)
  - Gastric perforation [Recovered/Resolved]
  - Systemic candida [Not Recovered/Not Resolved]
  - Fungal peritonitis [Not Recovered/Not Resolved]
  - Steroid diabetes [Unknown]

NARRATIVE: CASE EVENT DATE: 2017
